FAERS Safety Report 7999061-2 (Version None)
Quarter: 2011Q4

REPORT INFORMATION
  Report Type: 
  Country: None (occurrence: None)
  Receive Date: 20111221
  Receipt Date: 20111213
  Transmission Date: 20120403
  Serious: Yes (Other)
  Sender: FDA-Public Use
  Company Number: PHEH2005US08930

PATIENT
  Sex: Female

DRUGS (14)
  1. ZOMETA [Suspect]
  2. RANITIDINE [Concomitant]
  3. SPIRIVA [Concomitant]
  4. POTASSIUM CHLORIDE [Concomitant]
  5. COLACE [Concomitant]
  6. GUAIFENESIN [Concomitant]
  7. ZANTAC [Concomitant]
  8. ADVAIR DISKUS 100/50 [Concomitant]
  9. NYSTATIN [Concomitant]
  10. METFORMIN HCL [Concomitant]
  11. FISH OIL [Concomitant]
  12. RADIATION [Concomitant]
  13. AREDIA [Suspect]
  14. VESICARE [Concomitant]

REACTIONS (32)
  - GAIT DISTURBANCE [None]
  - PULMONARY FIBROSIS [None]
  - HYPOMAGNESAEMIA [None]
  - CARDIAC FAILURE CONGESTIVE [None]
  - INCONTINENCE [None]
  - CATARACT [None]
  - VISION BLURRED [None]
  - AORTIC ARTERIOSCLEROSIS [None]
  - OSTEONECROSIS OF JAW [None]
  - ASTHMA [None]
  - JOINT SWELLING [None]
  - INSOMNIA [None]
  - TIBIA FRACTURE [None]
  - FEMUR FRACTURE [None]
  - NEPHROLITHIASIS [None]
  - LOSS OF CONSCIOUSNESS [None]
  - GLAUCOMA [None]
  - MITRAL VALVE PROLAPSE [None]
  - PULMONARY CONGESTION [None]
  - PLEURAL EFFUSION [None]
  - VARICOSE VEIN [None]
  - HYPOKALAEMIA [None]
  - GINGIVAL BLEEDING [None]
  - HAEMATURIA [None]
  - EPISTAXIS [None]
  - HYPOAESTHESIA [None]
  - TRICUSPID VALVE INCOMPETENCE [None]
  - MICROCYTIC ANAEMIA [None]
  - MASTICATION DISORDER [None]
  - OEDEMA PERIPHERAL [None]
  - PAIN [None]
  - FALL [None]
